FAERS Safety Report 24779632 (Version 1)
Quarter: 2024Q4

REPORT INFORMATION
  Report Type: Report from Study
  Country: CA (occurrence: CA)
  Receive Date: 20241226
  Receipt Date: 20241226
  Transmission Date: 20250115
  Serious: Yes (Hospitalization)
  Sender: ABBVIE
  Company Number: CA-ABBVIE-6056317

PATIENT
  Age: 64 Year
  Sex: Female

DRUGS (1)
  1. HUMIRA [Suspect]
     Active Substance: ADALIMUMAB
     Indication: Pyoderma gangrenosum
     Route: 058
     Dates: start: 20211020

REACTIONS (11)
  - Rotator cuff syndrome [Unknown]
  - Muscular weakness [Unknown]
  - Neck pain [Unknown]
  - Bursitis [Unknown]
  - Tendon disorder [Unknown]
  - Tenosynovitis [Unknown]
  - Cartilage injury [Unknown]
  - Osteoarthritis [Unknown]
  - Arthritis [Unknown]
  - Rheumatoid arthritis [Unknown]
  - Hypoaesthesia [Unknown]

NARRATIVE: CASE EVENT DATE: 20240101
